FAERS Safety Report 5040391-4 (Version None)
Quarter: 2006Q2

REPORT INFORMATION
  Report Type: 
  Country: None (occurrence: None)
  Receive Date: 20060630
  Receipt Date: 20060307
  Transmission Date: 20061013
  Serious: Yes (Other)
  Sender: FDA-Public Use
  Company Number: US-GLAXOSMITHKLINE-A0596521A

PATIENT
  Age: 26 Year
  Sex: Male

DRUGS (7)
  1. TABLOID [Suspect]
     Indication: PSORIATIC ARTHROPATHY
     Dosage: 5TAB WEEKLY
     Route: 048
  2. ENBREL [Concomitant]
  3. MUCINEX [Concomitant]
  4. MUCOLYTIC [Concomitant]
  5. FLONASE [Concomitant]
     Route: 045
  6. MUCINEX [Concomitant]
  7. ENBREL [Concomitant]

REACTIONS (7)
  - ABDOMINAL DISTENSION [None]
  - HYPERTHYROIDISM [None]
  - NAUSEA [None]
  - RED BLOOD CELL COUNT DECREASED [None]
  - THERAPEUTIC RESPONSE UNEXPECTED [None]
  - VOMITING [None]
  - WEIGHT DECREASED [None]
